FAERS Safety Report 5037880-5 (Version None)
Quarter: 2006Q2

REPORT INFORMATION
  Report Type: 
  Country: None (occurrence: None)
  Receive Date: 20060626
  Receipt Date: 20060615
  Transmission Date: 20061013
  Serious: Yes (Hospitalization)
  Sender: FDA-Public Use
  Company Number: GXKR2006JP03326

PATIENT
  Age: 36 Year
  Sex: Male

DRUGS (1)
  1. RIFAMPICIN [Suspect]
     Indication: PULMONARY TUBERCULOSIS
     Dates: start: 20051028

REACTIONS (9)
  - ABDOMINAL PAIN UPPER [None]
  - ADRENAL INSUFFICIENCY [None]
  - ANOREXIA [None]
  - BLOOD SODIUM DECREASED [None]
  - C-REACTIVE PROTEIN INCREASED [None]
  - FATIGUE [None]
  - PIGMENTATION DISORDER [None]
  - ULTRASOUND ABDOMEN ABNORMAL [None]
  - WHITE BLOOD CELL DISORDER [None]
